FAERS Safety Report 23245117 (Version 1)
Quarter: 2023Q4

REPORT INFORMATION
  Report Type: Spontaneous
  Country: US (occurrence: US)
  Receive Date: 20231130
  Receipt Date: 20231130
  Transmission Date: 20240109
  Serious: No
  Sender: FDA-Public Use
  Company Number: US-IBSA PHARMA INC.-2023IBS000623

PATIENT

DRUGS (2)
  1. TIROSINT [Suspect]
     Active Substance: LEVOTHYROXINE SODIUM
     Indication: Thyroid hormone replacement therapy
     Dosage: 150 MILLIGRAM
     Dates: start: 2018
  2. ATENOLOL [Concomitant]
     Active Substance: ATENOLOL
     Indication: Product used for unknown indication
     Dosage: UNK

REACTIONS (8)
  - Malaise [Unknown]
  - Tooth fracture [Unknown]
  - Ear disorder [Unknown]
  - Visual impairment [Unknown]
  - Temporomandibular joint syndrome [Unknown]
  - Palpitations [Unknown]
  - Blood thyroid stimulating hormone abnormal [Unknown]
  - Product dose omission issue [Unknown]
